FAERS Safety Report 10160679 (Version 2)
Quarter: 2014Q3

REPORT INFORMATION
  Report Type: Spontaneous
  Country: SE (occurrence: SE)
  Receive Date: 20140508
  Receipt Date: 20140728
  Transmission Date: 20150326
  Serious: Yes (Hospitalization, Other)
  Sender: FDA-Public Use
  Company Number: SE-TEVA-478350ISR

PATIENT
  Age: 23 Year
  Sex: Female

DRUGS (22)
  1. FLUOXETINE [Suspect]
     Active Substance: FLUOXETINE\FLUOXETINE HYDROCHLORIDE
     Indication: ANXIETY
  2. IMOVANE [Suspect]
     Active Substance: ZOPICLONE
  3. QUETIAPINE TEVA [Suspect]
     Active Substance: QUETIAPINE
  4. CETIRIZINE [Suspect]
     Active Substance: CETIRIZINE HYDROCHLORIDE
  5. CISORDINOL [Suspect]
     Active Substance: ZUCLOPENTHIXOL
  6. LITHIONIT [Suspect]
     Active Substance: LITHIUM SULFATE
  7. SEROQUEL [Suspect]
     Active Substance: QUETIAPINE FUMARATE
  8. AKINETON [Suspect]
     Active Substance: BIPERIDEN HYDROCHLORIDE
  9. ERGENYL [Suspect]
     Active Substance: VALPROIC ACID
  10. INVEGA [Suspect]
     Active Substance: PALIPERIDONE
  11. NOZINAN [Suspect]
     Active Substance: LEVOMEPROMAZINE
  12. OXASCAND [Suspect]
     Active Substance: OXAZEPAM
  13. SOBRIL [Suspect]
     Active Substance: OXAZEPAM
  14. TOPIRAMATE. [Suspect]
     Active Substance: TOPIRAMATE
  15. THERALEN [Suspect]
     Active Substance: TRIMEPRAZINE
  16. HEMINEVRIN [Suspect]
     Active Substance: CLOMETHIAZOLE
  17. STESOLID [Suspect]
     Active Substance: DIAZEPAM
  18. PARGITAN 5 MG TABLETT [Suspect]
     Active Substance: TRIHEXYPHENIDYL HYDROCHLORIDE
  19. OMEPRAZOLE. [Suspect]
     Active Substance: OMEPRAZOLE
  20. ZYPREXA [Suspect]
     Active Substance: OLANZAPINE
  21. PROPAVAN 25 MG TABLETT [Suspect]
     Active Substance: PROPIOMAZINE
  22. ATARAX [Suspect]
     Active Substance: HYDROXYZINE\HYDROXYZINE HYDROCHLORIDE

REACTIONS (20)
  - Agitation [Unknown]
  - Dyspnoea [Unknown]
  - Dysuria [Unknown]
  - Weight increased [Unknown]
  - Swelling [Unknown]
  - Muscle spasms [Unknown]
  - Amenorrhoea [Not Recovered/Not Resolved]
  - Hyperhidrosis [Unknown]
  - Genital neoplasm malignant female [Not Recovered/Not Resolved]
  - Ovarian germ cell cancer stage II [Unknown]
  - Breast enlargement [Unknown]
  - Fatigue [Unknown]
  - Palpitations [Unknown]
  - Tremor [Unknown]
  - Muscular weakness [Unknown]
  - Galactorrhoea [Not Recovered/Not Resolved]
  - Blood prolactin increased [Unknown]
  - Aggression [Unknown]
  - Dyskinesia [Unknown]
  - Abdominal pain [Unknown]

NARRATIVE: CASE EVENT DATE: 201210
